FAERS Safety Report 9710768 (Version 2)
Quarter: 2014Q1

REPORT INFORMATION
  Report Type: Spontaneous
  Country: US (occurrence: US)
  Receive Date: 20131126
  Receipt Date: 20140331
  Transmission Date: 20141002
  Serious: Yes (Hospitalization)
  Sender: FDA-Public Use
  Company Number: US-JNJFOC-20131113599

PATIENT
  Age: 60 Year
  Sex: Female
  Weight: 94.6 kg

DRUGS (9)
  1. TRAMADOL HYDROCHLORIDE [Suspect]
     Indication: ARTHRALGIA
     Route: 048
     Dates: start: 20130520
  2. AMLODIPINE [Suspect]
     Indication: HYPERTENSION
     Route: 048
     Dates: start: 20130520
  3. ENALAPRIL [Suspect]
     Indication: HYPERTENSION
     Route: 048
  4. ENALAPRIL [Suspect]
     Indication: HYPERTENSION
     Route: 048
     Dates: start: 20130520
  5. INVESTIGATIONAL DRUG [Concomitant]
     Indication: EX-TOBACCO USER
     Route: 048
     Dates: start: 20130613, end: 20130830
  6. METHOCARBAMOL [Concomitant]
     Indication: MUSCLE SPASMS
     Route: 065
     Dates: start: 20130520
  7. DIPHENDRAMINE EXPECTORANT [Concomitant]
     Indication: SINUSITIS
     Route: 065
     Dates: start: 20130501
  8. DIPHENDRAMINE EXPECTORANT [Concomitant]
     Indication: HYPERSENSITIVITY
     Route: 065
     Dates: start: 20130501
  9. TOLMETIN SODIUM [Concomitant]
     Indication: ARTHRALGIA
     Route: 065
     Dates: start: 20130409

REACTIONS (2)
  - Chest pain [Recovered/Resolved]
  - Dizziness [Recovered/Resolved]
